FAERS Safety Report 10572911 (Version 1)
Quarter: 2014Q4

REPORT INFORMATION
  Report Type: Spontaneous
  Country: US (occurrence: None)
  Receive Date: 20141107
  Receipt Date: 20141107
  Transmission Date: 20150529
  Serious: Yes (Other)
  Sender: FDA-Public Use
  Company Number: None

PATIENT
  Age: 60 Year
  Sex: Male
  Weight: 102.06 kg

DRUGS (1)
  1. FINASTERIDE. [Suspect]
     Active Substance: FINASTERIDE
     Indication: BENIGN PROSTATIC HYPERPLASIA
     Dates: start: 20081101, end: 20131101

REACTIONS (6)
  - Gynaecomastia [None]
  - Penile size reduced [None]
  - Anorgasmia [None]
  - Penis disorder [None]
  - Ejaculation failure [None]
  - Erectile dysfunction [None]

NARRATIVE: CASE EVENT DATE: 20131101
